FAERS Safety Report 9014267 (Version 1)
Quarter: 2013Q1

REPORT INFORMATION
  Report Type: Spontaneous
  Country: FR (occurrence: FR)
  Receive Date: 20130115
  Receipt Date: 20130115
  Transmission Date: 20140127
  Serious: Yes (Other)
  Sender: FDA-Public Use
  Company Number: FR-JNJFOC-20130103505

PATIENT
  Age: 34 Year
  Sex: Female

DRUGS (11)
  1. REMICADE [Suspect]
     Indication: CROHN^S DISEASE
     Route: 042
     Dates: start: 201105, end: 2012
  2. LEVOTHYROX [Concomitant]
     Route: 065
  3. PENTASA [Concomitant]
     Route: 065
  4. PARIET [Concomitant]
     Route: 065
  5. BIPERIDYS [Concomitant]
     Route: 065
  6. DAFALGAN [Concomitant]
     Route: 065
  7. SPASFON [Concomitant]
     Route: 065
  8. LOPERAMIDE [Concomitant]
     Route: 065
  9. VENTOLIN [Concomitant]
     Route: 065
  10. SPAGLUMIC ACID [Concomitant]
     Route: 065
  11. GUTRON [Concomitant]
     Route: 065

REACTIONS (1)
  - Systemic lupus erythematosus [Not Recovered/Not Resolved]
